FAERS Safety Report 7008635-7 (Version None)
Quarter: 2010Q3

REPORT INFORMATION
  Report Type: 
  Country: None (occurrence: None)
  Receive Date: 20100922
  Receipt Date: 20100910
  Transmission Date: 20110219
  Serious: Yes (Hospitalization)
  Sender: FDA-Public Use
  Company Number: PHHY2010BE56649

PATIENT
  Age: 72 Year
  Sex: Male

DRUGS (5)
  1. ACLASTA [Suspect]
     Indication: OSTEOPOROSIS
     Dosage: UNK
     Dates: start: 20100822
  2. CALCIUM [Concomitant]
  3. VITAMIN D [Concomitant]
  4. DAFALGAN [Concomitant]
  5. TRAMADOL HCL [Concomitant]
     Dosage: ON OCCASION

REACTIONS (7)
  - ARTHRALGIA [None]
  - CONFUSIONAL STATE [None]
  - CONSTIPATION [None]
  - DIARRHOEA [None]
  - HYPOKALAEMIA [None]
  - INFLUENZA LIKE ILLNESS [None]
  - PYREXIA [None]
